FAERS Safety Report 7787591-8 (Version None)
Quarter: 2011Q3

REPORT INFORMATION
  Report Type: 
  Country: None (occurrence: None)
  Receive Date: 20110929
  Receipt Date: 20110921
  Transmission Date: 20111222
  Serious: Yes (Death, Hospitalization)
  Sender: FDA-Public Use
  Company Number: CA-BAXTER-2011BH029895

PATIENT
  Age: 78 Year
  Sex: Female

DRUGS (2)
  1. DIANEAL [Suspect]
     Route: 033
     Dates: start: 20110506, end: 20110101
  2. DIANEAL [Suspect]
     Indication: PERITONEAL DIALYSIS
     Route: 033
     Dates: start: 20110506, end: 20110101

REACTIONS (6)
  - INFECTIOUS PERITONITIS [None]
  - ABDOMINAL PAIN [None]
  - DEATH [None]
  - ABDOMINAL ABSCESS [None]
  - SEPSIS [None]
  - PYREXIA [None]
